FAERS Safety Report 11071415 (Version 1)
Quarter: 2015Q2

REPORT INFORMATION
  Report Type: Spontaneous
  Country: GB (occurrence: GB)
  Receive Date: 20150428
  Receipt Date: 20150428
  Transmission Date: 20150821
  Serious: Yes (Death, Other)
  Sender: FDA-Public Use
  Company Number: GB-CIPLA LTD.-2015UA03341

PATIENT

DRUGS (10)
  1. DELAVIRDINE [Suspect]
     Active Substance: DELAVIRDINE
     Route: 065
  2. STAVUDINE. [Suspect]
     Active Substance: STAVUDINE
     Route: 065
  3. TENOFOVIR DISOPROXIL FUMARATE [Suspect]
     Active Substance: TENOFOVIR DISOPROXIL FUMARATE
     Route: 065
  4. LAMIVUDINE. [Suspect]
     Active Substance: LAMIVUDINE
     Route: 065
  5. ETRAVIRINE [Suspect]
     Active Substance: ETRAVIRINE
     Route: 065
  6. ZIDOVUDINE. [Suspect]
     Active Substance: ZIDOVUDINE
     Route: 065
  7. EFAVIRENZ [Suspect]
     Active Substance: EFAVIRENZ
     Route: 065
  8. DIDANOSINE. [Suspect]
     Active Substance: DIDANOSINE
     Route: 065
  9. NEVIRAPINE. [Suspect]
     Active Substance: NEVIRAPINE
     Route: 065
  10. ABACAVIR [Suspect]
     Active Substance: ABACAVIR
     Route: 065

REACTIONS (2)
  - Death [Fatal]
  - Virologic failure [Unknown]
